FAERS Safety Report 7326667-6 (Version None)
Quarter: 2011Q1

REPORT INFORMATION
  Report Type: 
  Country: None (occurrence: None)
  Receive Date: 20110302
  Receipt Date: 20110224
  Transmission Date: 20110831
  Serious: No
  Sender: FDA-Public Use
  Company Number: JP-EISAI INC-E2090-01480-SPO-JP

PATIENT
  Sex: Male

DRUGS (9)
  1. BLOPRESS [Concomitant]
     Dosage: 4 MG DAILY
  2. OSPAIN [Concomitant]
     Dosage: 200 MG DAILY
     Route: 048
  3. VALERIN [Concomitant]
     Dosage: 15 MG DAILY
  4. DANTRIUM [Concomitant]
     Dosage: 25 MG DAILY
     Route: 048
  5. AMLODIPINE BESILATE [Concomitant]
     Dosage: 1.25 MG DAILY
     Route: 048
  6. SELBEX [Concomitant]
     Dosage: 4 MG DAILY
  7. MAGNESIUM OXIDE [Concomitant]
     Dosage: 660 MG DAILY
     Route: 048
  8. EXCEGRAN [Suspect]
     Dosage: 200 MG DAILY
     Route: 048
     Dates: start: 20110114, end: 20110130
  9. VALPROATE SODIUM [Concomitant]
     Dosage: 600 MG DAILY
     Route: 048

REACTIONS (2)
  - WHITE BLOOD CELL COUNT DECREASED [None]
  - STEVENS-JOHNSON SYNDROME [None]
